FAERS Safety Report 20177029 (Version 1)
Quarter: 2021Q4

REPORT INFORMATION
  Report Type: Spontaneous
  Country: TW (occurrence: None)
  Receive Date: 20211211
  Receipt Date: 20211211
  Transmission Date: 20220303
  Serious: Yes (Other)
  Sender: FDA-Public Use
  Company Number: None

PATIENT
  Age: 65 Year
  Sex: Female
  Weight: 59 kg

DRUGS (10)
  1. LEVOFLOXACIN [Suspect]
     Active Substance: LEVOFLOXACIN
     Indication: Urinary tract infection
     Dosage: FREQUENCY : DAILY;?
     Route: 048
     Dates: start: 20210721, end: 20210723
  2. VITAMIN A [Concomitant]
     Active Substance: VITAMIN A
  3. VITAMIN E [Concomitant]
     Active Substance: .ALPHA.-TOCOPHEROL
  4. VITAMIN B [Concomitant]
     Active Substance: VITAMIN B
  5. VITAMIN C [Concomitant]
     Active Substance: ASCORBIC ACID
  6. MENAQUINONE 6 [Concomitant]
     Active Substance: MENAQUINONE 6
  7. ZINC [Concomitant]
     Active Substance: ZINC
  8. MAGNESIUM [Concomitant]
     Active Substance: MAGNESIUM
  9. potasium [Concomitant]
  10. OMEGA 3 [Concomitant]
     Active Substance: CAPSAICIN

REACTIONS (13)
  - Feeling abnormal [None]
  - Asthenia [None]
  - Dizziness [None]
  - Gait disturbance [None]
  - Panic reaction [None]
  - Palpitations [None]
  - Confusional state [None]
  - Pyrexia [None]
  - Chills [None]
  - Nausea [None]
  - Sleep disorder [None]
  - Palpitations [None]
  - Arthropathy [None]

NARRATIVE: CASE EVENT DATE: 20210725
